FAERS Safety Report 9659774 (Version 1)
Quarter: 2013Q4

REPORT INFORMATION
  Report Type: Spontaneous
  Country: US (occurrence: US)
  Receive Date: 20131031
  Receipt Date: 20131031
  Transmission Date: 20140711
  Serious: No
  Sender: FDA-Public Use
  Company Number: US-PFIZER INC-2013305951

PATIENT
  Age: 79 Year
  Sex: Female
  Weight: 81.63 kg

DRUGS (4)
  1. NORVASC [Suspect]
     Indication: BLOOD PRESSURE ABNORMAL
     Dosage: 10 MG, DAILY
  2. PREMARIN [Suspect]
     Dosage: 1 G, WEEKLY
     Route: 067
  3. LYRICA [Suspect]
     Indication: FIBROMYALGIA
     Dosage: 75 MG, 2X/DAY
     Dates: start: 2010
  4. CHANTIX [Suspect]
     Indication: SMOKING CESSATION THERAPY
     Dosage: UNK
     Dates: end: 2013

REACTIONS (3)
  - Hypersensitivity [Unknown]
  - Urticaria [Unknown]
  - Oedema mouth [Unknown]
